FAERS Safety Report 23580669 (Version 1)
Quarter: 2024Q1

REPORT INFORMATION
  Report Type: Spontaneous
  Country: CA (occurrence: CA)
  Receive Date: 20240229
  Receipt Date: 20240229
  Transmission Date: 20240409
  Serious: Yes (Other)
  Sender: FDA-Public Use
  Company Number: CA-TEVA-VS-3161413

PATIENT
  Age: 71 Year
  Sex: Male

DRUGS (2)
  1. NITROFURANTOIN [Suspect]
     Active Substance: NITROFURANTOIN
     Indication: Prophylaxis urinary tract infection
     Route: 065
  2. HYDRALAZINE [Suspect]
     Active Substance: HYDRALAZINE HYDROCHLORIDE
     Indication: Cardiac failure
     Route: 065

REACTIONS (4)
  - COVID-19 pneumonia [Recovering/Resolving]
  - Lung opacity [Recovering/Resolving]
  - Pneumonia [Recovering/Resolving]
  - Pneumonitis [Recovering/Resolving]
